FAERS Safety Report 6888712-1 (Version None)
Quarter: 2010Q3

REPORT INFORMATION
  Report Type: 
  Country: None (occurrence: None)
  Receive Date: 20100730
  Receipt Date: 20100721
  Transmission Date: 20110219
  Serious: Yes (Life-Threatening)
  Sender: FDA-Public Use
  Company Number: RO-AMGEN-QUU426982

PATIENT
  Sex: Female

DRUGS (5)
  1. ENBREL [Suspect]
     Indication: RHEUMATOID ARTHRITIS
     Dates: start: 20090101
  2. DICLOFENAC [Concomitant]
     Indication: RHEUMATOID ARTHRITIS
     Dosage: 50 - 100 MG /DAY, INTERMITTENT
     Route: 048
     Dates: start: 19980101, end: 20100201
  3. PREDNISONE [Concomitant]
     Indication: RHEUMATOID ARTHRITIS
     Dosage: 5 - 15 MG / DAY, OCCASIONALLY
     Route: 048
     Dates: end: 20100201
  4. METHOTREXATE [Concomitant]
     Indication: RHEUMATOID ARTHRITIS
     Route: 030
     Dates: start: 20000101
  5. METHOTREXATE [Concomitant]
     Route: 030
     Dates: end: 20100201

REACTIONS (2)
  - HYDROCEPHALUS [None]
  - PITUITARY ENLARGEMENT [None]
